FAERS Safety Report 9959215 (Version 1)
Quarter: 2014Q1

REPORT INFORMATION
  Report Type: Spontaneous
  Country: US (occurrence: None)
  Receive Date: 20140228
  Receipt Date: 20140228
  Transmission Date: 20141002
  Serious: No
  Sender: FDA-Public Use
  Company Number: None

PATIENT
  Age: 49 Year
  Sex: Female
  Weight: 90.72 kg

DRUGS (5)
  1. METOPROLOL SUCCINATE ER [Suspect]
     Indication: BLOOD PRESSURE
     Route: 048
     Dates: start: 20140114, end: 20140208
  2. LISINOPRIL [Concomitant]
  3. ATORVASTATIN [Concomitant]
  4. ASPIRIN [Concomitant]
  5. ATORVASTATIN [Concomitant]

REACTIONS (4)
  - Nausea [None]
  - Glossodynia [None]
  - Dyspepsia [None]
  - Dysgeusia [None]
